FAERS Safety Report 12571152 (Version 5)
Quarter: 2017Q3

REPORT INFORMATION
  Report Type: Spontaneous
  Country: CA (occurrence: CA)
  Receive Date: 20160719
  Receipt Date: 20170824
  Transmission Date: 20171127
  Serious: Yes (Other)
  Sender: FDA-Public Use
  Company Number: CA-PFIZER INC-2016324063

PATIENT
  Age: 85 Year
  Sex: Male

DRUGS (10)
  1. ELIQUIS [Interacting]
     Active Substance: APIXABAN
     Dosage: 5 MG, 2X/DAY
     Route: 065
     Dates: start: 201604
  2. METOPROLOL. [Suspect]
     Active Substance: METOPROLOL
     Dosage: UNK
     Route: 065
  3. WARFARIN [Suspect]
     Active Substance: WARFARIN
     Indication: ATRIAL FIBRILLATION
     Dosage: UNK
     Route: 065
  4. ATORVASTATIN CALCIUM. [Suspect]
     Active Substance: ATORVASTATIN CALCIUM
     Dosage: UNK
     Route: 065
  5. PANTOLOC [Interacting]
     Active Substance: PANTOPRAZOLE SODIUM
     Dosage: UNK
     Route: 065
  6. DABIGATRAN [Suspect]
     Active Substance: DABIGATRAN
     Indication: ATRIAL FIBRILLATION
     Dosage: UNK UNK, 2X/DAY
     Route: 065
  7. ASA [Suspect]
     Active Substance: ASPIRIN
     Dosage: UNK
     Route: 065
  8. PRADAX [Suspect]
     Active Substance: DABIGATRAN ETEXILATE MESYLATE
     Indication: ATRIAL FIBRILLATION
     Dosage: UNK, QD
  9. VITAMINS /00067501/ [Suspect]
     Active Substance: VITAMINS
     Dosage: UNK
     Route: 065
  10. ELIQUIS [Interacting]
     Active Substance: APIXABAN
     Indication: CEREBROVASCULAR ACCIDENT PROPHYLAXIS
     Dosage: 5 MG, 2X/DAY
     Route: 065
     Dates: start: 201503

REACTIONS (3)
  - Treatment failure [Unknown]
  - Cerebrovascular accident [Unknown]
  - Drug interaction [Unknown]
